FAERS Safety Report 7745888-1 (Version None)
Quarter: 2011Q3

REPORT INFORMATION
  Report Type: 
  Country: None (occurrence: None)
  Receive Date: 20110908
  Receipt Date: 20110829
  Transmission Date: 20111222
  Serious: No
  Sender: FDA-Public Use
  Company Number: ACO_26445_2011

PATIENT
  Age: 46 Year
  Sex: Male

DRUGS (1)
  1. AMPYRA [Suspect]
     Indication: GAIT DISTURBANCE
     Dosage: 10 MG, ORAL
     Route: 048
     Dates: start: 20100601, end: 20100701

REACTIONS (1)
  - INTESTINAL PERFORATION [None]
